FAERS Safety Report 10866040 (Version 1)
Quarter: 2015Q1

REPORT INFORMATION
  Report Type: Report from Study
  Country: ZA (occurrence: ZA)
  Receive Date: 20150225
  Receipt Date: 20150225
  Transmission Date: 20150721
  Serious: Yes (Death)
  Sender: FDA-Public Use
  Company Number: ZA-AMGEN-ZAFSL2015015834

PATIENT
  Age: 48 Year
  Sex: Female

DRUGS (2)
  1. ARANESP [Suspect]
     Active Substance: DARBEPOETIN ALFA
     Indication: PRODUCT USED FOR UNKNOWN INDICATION
     Dosage: 30 MUG, QWK
     Route: 065
     Dates: start: 201202
  2. VENOFER [Concomitant]
     Active Substance: IRON SUCROSE
     Dosage: 100 MG, QWK

REACTIONS (1)
  - Death [Fatal]
